FAERS Safety Report 9780201 (Version 1)
Quarter: 2013Q4

REPORT INFORMATION
  Report Type: Report from Study
  Country: CH (occurrence: CH)
  Receive Date: 20131223
  Receipt Date: 20131223
  Transmission Date: 20140711
  Serious: Yes (Other)
  Sender: FDA-Public Use
  Company Number: CH-BAXTER-2013BAX052831

PATIENT
  Sex: 0

DRUGS (2)
  1. FLUCONAZOL REDIBAG BAXTER [Suspect]
     Indication: CUTANEOUS LEISHMANIASIS
     Route: 065
  2. FLUCONAZOL REDIBAG BAXTER [Suspect]
     Indication: OFF LABEL USE

REACTIONS (1)
  - Treatment failure [Not Recovered/Not Resolved]
